FAERS Safety Report 19881267 (Version 1)
Quarter: 2021Q3

REPORT INFORMATION
  Report Type: Report from Study
  Country: US (occurrence: US)
  Receive Date: 20210924
  Receipt Date: 20210924
  Transmission Date: 20211014
  Serious: Yes (Other)
  Sender: FDA-Public Use
  Company Number: US-TAKEDA-2021TUS044398

PATIENT
  Sex: Male
  Weight: 68.03 kg

DRUGS (74)
  1. VALACYCLOVIR [Concomitant]
     Active Substance: VALACYCLOVIR HYDROCHLORIDE
  2. ERYTHROMYCIN. [Concomitant]
     Active Substance: ERYTHROMYCIN
  3. SUCRALFATE. [Concomitant]
     Active Substance: SUCRALFATE
  4. POTASSIUM 167MG WITH MAGNESIUM + VITAMIN B6 [Concomitant]
  5. BETAMETHASON [Concomitant]
     Active Substance: BETAMETHASONE
  6. TIZANIDINE ARROW [Concomitant]
  7. NYSTATIN. [Concomitant]
     Active Substance: NYSTATIN
  8. MIDODRINE HCL [Concomitant]
     Active Substance: MIDODRINE HYDROCHLORIDE
  9. BISACODYL. [Concomitant]
     Active Substance: BISACODYL
  10. PANTOPRAZOLE [Concomitant]
     Active Substance: PANTOPRAZOLE
  11. HYDROMORPHONE [Concomitant]
     Active Substance: HYDROMORPHONE
  12. PROAIR HFA [Concomitant]
     Active Substance: ALBUTEROL SULFATE
  13. ULORIC [Concomitant]
     Active Substance: FEBUXOSTAT
     Indication: PRODUCT USED FOR UNKNOWN INDICATION
  14. LMX [Concomitant]
     Indication: PRODUCT USED FOR UNKNOWN INDICATION
     Route: 065
  15. CITRUCEL [Concomitant]
     Active Substance: METHYLCELLULOSE (4000 MPA.S)
  16. FAMOTIDINE. [Concomitant]
     Active Substance: FAMOTIDINE
  17. ZYRTEC [Concomitant]
     Active Substance: CETIRIZINE HYDROCHLORIDE
  18. PROLIA [Concomitant]
     Active Substance: DENOSUMAB
  19. CLONAZEPAM. [Concomitant]
     Active Substance: CLONAZEPAM
  20. LEVETIRACETAM 1A FARMA [Concomitant]
     Active Substance: LEVETIRACETAM
  21. ZINC + CASTOR OIL [Concomitant]
  22. DIPHENHYDRAMINE. [Concomitant]
     Active Substance: DIPHENHYDRAMINE
     Indication: PRODUCT USED FOR UNKNOWN INDICATION
     Route: 065
  23. EPINEPHRINE. [Concomitant]
     Active Substance: EPINEPHRINE
     Indication: PRODUCT USED FOR UNKNOWN INDICATION
     Route: 065
  24. DOCUSATE [Concomitant]
     Active Substance: DOCUSATE
     Indication: PRODUCT USED FOR UNKNOWN INDICATION
     Route: 065
  25. SODIUM [Concomitant]
     Active Substance: SODIUM
     Indication: PRODUCT USED FOR UNKNOWN INDICATION
     Route: 065
  26. TOPIRAMATE ACCORD [Concomitant]
     Active Substance: TOPIRAMATE
  27. MELATONIN [Concomitant]
     Active Substance: MELATONIN
  28. ADEMPAS [Concomitant]
     Active Substance: RIOCIGUAT
  29. MEDROL [Concomitant]
     Active Substance: METHYLPREDNISOLONE
  30. PATADAY [Concomitant]
     Active Substance: OLOPATADINE HYDROCHLORIDE
  31. EXCEDRIN [Concomitant]
     Active Substance: ACETAMINOPHEN\ASPIRIN\CAFFEINE
  32. LIDOCAINE. [Concomitant]
     Active Substance: LIDOCAINE
  33. VITAMIN D3 [Concomitant]
     Active Substance: CHOLECALCIFEROL
  34. ZIAC [Concomitant]
     Active Substance: BISOPROLOL FUMARATE\HYDROCHLOROTHIAZIDE
  35. VITAMIN D2 [Concomitant]
     Active Substance: ERGOCALCIFEROL
  36. OXYGEN. [Concomitant]
     Active Substance: OXYGEN
     Indication: PRODUCT USED FOR UNKNOWN INDICATION
     Route: 065
  37. BUMETANIDE. [Concomitant]
     Active Substance: BUMETANIDE
  38. COLCHICINE. [Concomitant]
     Active Substance: COLCHICINE
  39. ALBUTEROL. [Concomitant]
     Active Substance: ALBUTEROL
  40. ONDANSETRON [Concomitant]
     Active Substance: ONDANSETRON
  41. SPIRONOLACTON [Concomitant]
     Active Substance: SPIRONOLACTONE
  42. DURAGESIC [Concomitant]
     Active Substance: FENTANYL
  43. OXCARBAZEPINE. [Concomitant]
     Active Substance: OXCARBAZEPINE
  44. VIBRAMYCIN AKNE [Concomitant]
     Active Substance: DOXYCYCLINE
  45. METHYLPREDNISOLONE. [Concomitant]
     Active Substance: METHYLPREDNISOLONE
  46. ASPERCREME NOS [Concomitant]
     Active Substance: MENTHOL\TROLAMINE SALICYLATE
  47. MUPIROCIN. [Concomitant]
     Active Substance: MUPIROCIN
     Indication: PRODUCT USED FOR UNKNOWN INDICATION
  48. ACETAMINOPHEN. [Concomitant]
     Active Substance: ACETAMINOPHEN
     Indication: PRODUCT USED FOR UNKNOWN INDICATION
     Route: 065
  49. HUMAN NORMAL IMMUNOGLOBULIN; LIQUID [Suspect]
     Active Substance: HUMAN IMMUNOGLOBULIN G
     Dosage: 45 GRAM, Q4WEEKS
     Route: 042
     Dates: start: 20210728
  50. MIRALAX [Concomitant]
     Active Substance: POLYETHYLENE GLYCOL 3350
  51. FLORASTOR [Concomitant]
     Active Substance: SACCHAROMYCES CEREVISIAE
  52. MOVANTIK [Concomitant]
     Active Substance: NALOXEGOL OXALATE
  53. CHLORHEXIDINE [Concomitant]
     Active Substance: CHLORHEXIDINE
  54. BISOPROLOL FUMARATE. [Concomitant]
     Active Substance: BISOPROLOL FUMARATE
     Indication: PRODUCT USED FOR UNKNOWN INDICATION
     Route: 065
  55. HUMAN NORMAL IMMUNOGLOBULIN; LIQUID [Suspect]
     Active Substance: HUMAN IMMUNOGLOBULIN G
     Indication: IMMUNODEFICIENCY COMMON VARIABLE
     Dosage: 40 GRAM, Q3WEEKS
     Route: 042
  56. OXYCODONE [Concomitant]
     Active Substance: OXYCODONE
  57. LATANOPROST. [Concomitant]
     Active Substance: LATANOPROST
  58. ORPHENADRINE [Concomitant]
     Active Substance: ORPHENADRINE
  59. SPIRONOLACTONE. [Concomitant]
     Active Substance: SPIRONOLACTONE
  60. HEPARIN [Concomitant]
     Active Substance: HEPARIN SODIUM
     Indication: PRODUCT USED FOR UNKNOWN INDICATION
     Route: 065
  61. CLOBETASOL [Concomitant]
     Active Substance: CLOBETASOL
     Indication: PRODUCT USED FOR UNKNOWN INDICATION
     Route: 065
  62. OYSTERCAL D [Concomitant]
     Indication: PRODUCT USED FOR UNKNOWN INDICATION
     Route: 065
  63. ARIXTRA [Concomitant]
     Active Substance: FONDAPARINUX SODIUM
     Indication: PRODUCT USED FOR UNKNOWN INDICATION
     Route: 065
  64. DEPO?TESTOSTERONE [Concomitant]
     Active Substance: TESTOSTERONE CYPIONATE
  65. TYLENOL [Concomitant]
     Active Substance: ACETAMINOPHEN
  66. XYZAL [Concomitant]
     Active Substance: LEVOCETIRIZINE DIHYDROCHLORIDE
  67. BREO ELLIPTA [Concomitant]
     Active Substance: FLUTICASONE FUROATE\VILANTEROL TRIFENATATE
  68. TEMAZEPAM. [Concomitant]
     Active Substance: TEMAZEPAM
  69. AZELASTINE. [Concomitant]
     Active Substance: AZELASTINE HYDROCHLORIDE
  70. TRAVATAN C [Concomitant]
  71. TOPAMAX MIGRAENE [Concomitant]
     Active Substance: TOPIRAMATE
  72. SODIUM CHLORIDE. [Concomitant]
     Active Substance: SODIUM CHLORIDE
     Indication: PRODUCT USED FOR UNKNOWN INDICATION
     Route: 065
  73. ALBUTEROL SULFATE. [Concomitant]
     Active Substance: ALBUTEROL SULFATE
     Indication: PRODUCT USED FOR UNKNOWN INDICATION
     Route: 065
  74. POTASSIUM CHLORIDE. [Concomitant]
     Active Substance: POTASSIUM CHLORIDE

REACTIONS (5)
  - Autoimmune disorder [Unknown]
  - Arthritis [Unknown]
  - Illness [Unknown]
  - Cough [Unknown]
  - Malaise [Unknown]
